FAERS Safety Report 6325470-3 (Version None)
Quarter: 2009Q3

REPORT INFORMATION
  Report Type: 
  Country: None (occurrence: None)
  Receive Date: 20090824
  Receipt Date: 20090709
  Transmission Date: 20100115
  Serious: No
  Sender: FDA-Public Use
  Company Number: US-ABBOTT-09P-163-0584837-00

PATIENT
  Sex: Male
  Weight: 104.87 kg

DRUGS (9)
  1. NIASPAN [Suspect]
     Indication: HIGH DENSITY LIPOPROTEIN DECREASED
     Dosage: 500MG DAILY,CUT IN HALF BY PATIENT
     Dates: start: 20090101
  2. NIASPAN [Suspect]
     Dosage: 500 MG
     Dates: start: 20090301
  3. WARFARIN [Concomitant]
     Indication: DEEP VEIN THROMBOSIS
  4. AMILODIPINE [Concomitant]
     Indication: BLOOD GLUCOSE INCREASED
  5. DIOVAN HCT [Concomitant]
     Indication: DRUG USE FOR UNKNOWN INDICATION
     Dosage: 160/25 DAILY
  6. ASPIRIN [Concomitant]
     Indication: DRUG USE FOR UNKNOWN INDICATION
  7. AVIDART [Concomitant]
     Indication: PROSTATIC SPECIFIC ANTIGEN INCREASED
  8. LIPITOR [Concomitant]
     Indication: DRUG USE FOR UNKNOWN INDICATION
     Dosage: CUTS TABLET IN THIRDS, DAILY
  9. OMEPRIZOL [Concomitant]
     Indication: DRUG USE FOR UNKNOWN INDICATION

REACTIONS (3)
  - INCORRECT DOSE ADMINISTERED [None]
  - TACHYCARDIA [None]
  - WRONG TECHNIQUE IN DRUG USAGE PROCESS [None]
